FAERS Safety Report 5480878-3 (Version None)
Quarter: 2007Q4

REPORT INFORMATION
  Report Type: 
  Country: None (occurrence: None)
  Receive Date: 20071009
  Receipt Date: 20071002
  Transmission Date: 20080405
  Serious: Yes (Other)
  Sender: FDA-Public Use
  Company Number: US-GENENTECH-228128

PATIENT
  Sex: Male
  Weight: 59.863 kg

DRUGS (3)
  1. LUCENTIS [Suspect]
     Indication: MACULAR DEGENERATION
     Dosage: UNK, UNK
     Dates: start: 20060719
  2. AVASTIN [Suspect]
     Indication: MACULAR DEGENERATION
  3. VERAPAMIL [Concomitant]
     Indication: HYPERTENSION
     Dosage: 180 MG, QD
     Route: 048

REACTIONS (2)
  - BLOOD PRESSURE INCREASED [None]
  - HEADACHE [None]
